FAERS Safety Report 4697385-8 (Version None)
Quarter: 2005Q2

REPORT INFORMATION
  Report Type: 
  Country: None (occurrence: None)
  Receive Date: 20050621
  Receipt Date: 20050608
  Transmission Date: 20051028
  Serious: Yes (Other)
  Sender: FDA-Public Use
  Company Number: USA0506100039

PATIENT
  Age: 13 Year
  Sex: Male

DRUGS (1)
  1. STRATTERA [Suspect]
     Dosage: 60 MG DAY

REACTIONS (5)
  - DIZZINESS [None]
  - FEELING ABNORMAL [None]
  - HEADACHE [None]
  - LOSS OF CONSCIOUSNESS [None]
  - VISUAL DISTURBANCE [None]
